FAERS Safety Report 17404659 (Version 1)
Quarter: 2020Q1

REPORT INFORMATION
  Report Type: Report from Study
  Country: SA (occurrence: SA)
  Receive Date: 20200211
  Receipt Date: 20200211
  Transmission Date: 20200409
  Serious: Yes (Hospitalization)
  Sender: FDA-Public Use
  Company Number: SA-ELI_LILLY_AND_COMPANY-SA201902002243

PATIENT
  Sex: Female

DRUGS (1)
  1. TERIPARATIDE [Suspect]
     Active Substance: TERIPARATIDE
     Indication: OSTEOPOROSIS
     Dosage: 20 UG, DAILY
     Route: 058
     Dates: start: 20180101

REACTIONS (12)
  - Dehydration [Recovering/Resolving]
  - Weight decreased [Recovering/Resolving]
  - Blood calcium increased [Recovering/Resolving]
  - Spinal pain [Unknown]
  - Renal pain [Recovering/Resolving]
  - Haemoglobin decreased [Recovering/Resolving]
  - Procedural pain [Unknown]
  - Insomnia [Unknown]
  - Arthralgia [Unknown]
  - Bone pain [Unknown]
  - Tachycardia [Recovering/Resolving]
  - Influenza [Unknown]

NARRATIVE: CASE EVENT DATE: 20181119
